FAERS Safety Report 21838386 (Version 7)
Quarter: 2023Q4

REPORT INFORMATION
  Report Type: Report from Study
  Country: US (occurrence: US)
  Receive Date: 20230109
  Receipt Date: 20231017
  Transmission Date: 20240110
  Serious: Yes (Life-Threatening, Other)
  Sender: FDA-Public Use
  Company Number: US-002147023-NVSC2023US003787

PATIENT
  Sex: Female

DRUGS (4)
  1. KESIMPTA [Suspect]
     Active Substance: OFATUMUMAB
     Indication: Multiple sclerosis
     Dosage: 20MG/0.4ML, QW (INJECT 1 PEN (20MG) AT WEEK 0, WEEK 1 AND WEEK 2 AS DIRECTED)
     Route: 058
     Dates: start: 20221224
  2. ASPIRIN [Concomitant]
     Active Substance: ASPIRIN
     Indication: Product used for unknown indication
     Dosage: UNK
     Route: 065
  3. IBUPROFEN [Concomitant]
     Active Substance: IBUPROFEN
     Indication: Product used for unknown indication
     Dosage: UNK
     Route: 065
  4. ZALEPLON [Concomitant]
     Active Substance: ZALEPLON
     Indication: Product used for unknown indication
     Dosage: UNK
     Route: 065

REACTIONS (14)
  - Suicidal ideation [Unknown]
  - Optic neuritis [Unknown]
  - Excessive eye blinking [Not Recovered/Not Resolved]
  - Ocular discomfort [Unknown]
  - Coordination abnormal [Unknown]
  - Asthenia [Unknown]
  - Self-injurious ideation [Unknown]
  - Visual impairment [Unknown]
  - Insomnia [Not Recovered/Not Resolved]
  - Fatigue [Unknown]
  - Influenza like illness [Recovered/Resolved]
  - Neuralgia [Recovered/Resolved]
  - Malaise [Unknown]
  - Drug effect less than expected [Unknown]
